FAERS Safety Report 11264700 (Version 2)
Quarter: 2015Q3

REPORT INFORMATION
  Report Type: Spontaneous
  Country: GB (occurrence: None)
  Receive Date: 20150709
  Receipt Date: 20150717
  Transmission Date: 20151125
  Serious: Yes (Other)
  Sender: FDA-Public Use
  Company Number: CO-UX-UK-2015-013

PATIENT
  Age: 40 Year
  Sex: 0

DRUGS (2)
  1. XATRAL XL (TABLET) (ALFUZOSIN HYDROCHLORIDE) [Suspect]
     Active Substance: ALFUZOSIN HYDROCHLORIDE
     Indication: BENIGN PROSTATIC HYPERPLASIA
  2. OXYTETRACYCLINE [Concomitant]
     Active Substance: OXYTETRACYCLINE

REACTIONS (4)
  - Loss of consciousness [None]
  - Disturbance in attention [None]
  - Dizziness [None]
  - Weight decreased [None]
